FAERS Safety Report 21908117 (Version 1)
Quarter: 2023Q1

REPORT INFORMATION
  Report Type: Spontaneous
  Country: US (occurrence: None)
  Receive Date: 20230124
  Receipt Date: 20230124
  Transmission Date: 20230417
  Serious: No
  Sender: FDA-Public Use
  Company Number: None

PATIENT
  Sex: Female

DRUGS (1)
  1. DOFETILIDE [Suspect]
     Active Substance: DOFETILIDE
     Indication: Atrial fibrillation
     Dosage: OTHER FREQUENCY : EVERY12 HOURS;?
     Route: 048
     Dates: start: 20170601

REACTIONS (2)
  - COVID-19 [None]
  - Therapy cessation [None]
